FAERS Safety Report 8349713-X (Version None)
Quarter: 2012Q2

REPORT INFORMATION
  Report Type: 
  Country: None (occurrence: None)
  Receive Date: 20120510
  Receipt Date: 20120501
  Transmission Date: 20120825
  Serious: Yes (Hospitalization)
  Sender: FDA-Public Use
  Company Number: US-SHIRE-ALL1-2012-01199

PATIENT
  Sex: Female
  Weight: 63.492 kg

DRUGS (1)
  1. LIALDA [Suspect]
     Indication: CROHN'S DISEASE
     Dosage: 2.4 G, 2X/DAY:BID
     Route: 048
     Dates: start: 20120213, end: 20120214

REACTIONS (9)
  - DIARRHOEA [None]
  - LYMPHADENOPATHY [None]
  - VOMITING [None]
  - CLOSTRIDIAL INFECTION [None]
  - INAPPROPRIATE SCHEDULE OF DRUG ADMINISTRATION [None]
  - COLITIS [None]
  - ABDOMINAL DISTENSION [None]
  - OFF LABEL USE [None]
  - ABDOMINAL PAIN [None]
